FAERS Safety Report 6593602-8 (Version None)
Quarter: 2010Q1

REPORT INFORMATION
  Report Type: 
  Country: None (occurrence: None)
  Receive Date: 20100222
  Receipt Date: 20090903
  Transmission Date: 20100710
  Serious: No
  Sender: FDA-Public Use
  Company Number: US-BRISTOL-MYERS SQUIBB COMPANY-14752133

PATIENT
  Age: 60 Year
  Sex: Female

DRUGS (2)
  1. ORENCIA [Suspect]
     Indication: RHEUMATOID ARTHRITIS
     Dosage: 1ST INF ON 01JUL09.DOSE1:LOT #9C05090 EXP DATE:JAN2012,DOSE 2:LOT #9C55093 EXP DATE:2012
     Route: 042
     Dates: start: 20090722
  2. MELATONIN [Suspect]
     Dosage: 1 DF - 1 TAB
     Route: 048
     Dates: start: 20090722

REACTIONS (3)
  - FEELING ABNORMAL [None]
  - NAUSEA [None]
  - OROPHARYNGEAL PAIN [None]
